FAERS Safety Report 8224384-1 (Version None)
Quarter: 2012Q1

REPORT INFORMATION
  Report Type: 
  Country: None (occurrence: None)
  Receive Date: 20120320
  Receipt Date: 20120320
  Transmission Date: 20120608
  Serious: No
  Sender: FDA-Public Use
  Company Number: None

PATIENT
  Age: 70 Year
  Sex: Male
  Weight: 60 kg

DRUGS (3)
  1. HALOPERIDOL [Suspect]
     Indication: DEMENTIA
     Dosage: 5 MG BID PO
     Route: 048
     Dates: start: 20111217, end: 20120105
  2. HALOPERIDOL [Suspect]
     Indication: OFF LABEL USE
     Dosage: 5 MG BID PO
     Route: 048
     Dates: start: 20111217, end: 20120105
  3. FLUPHENAZINE [Suspect]
     Dosage: 2 MG BID PO
     Route: 048
     Dates: start: 20120105, end: 20120110

REACTIONS (3)
  - RHABDOMYOLYSIS [None]
  - BLOOD UREA INCREASED [None]
  - BLOOD CREATININE INCREASED [None]
